FAERS Safety Report 7826113-X (Version None)
Quarter: 2011Q4

REPORT INFORMATION
  Report Type: 
  Country: None (occurrence: None)
  Receive Date: 20111019
  Receipt Date: 20111010
  Transmission Date: 20120403
  Serious: Yes (Hospitalization)
  Sender: FDA-Public Use
  Company Number: US-ASTRAZENECA-2011SE25882

PATIENT
  Age: 57 Year
  Sex: Female
  Weight: 68.9 kg

DRUGS (20)
  1. LANTUS [Concomitant]
     Indication: DIABETES MELLITUS
  2. IMODIUM [Concomitant]
  3. IMITREX [Concomitant]
  4. NEXIUM [Suspect]
     Indication: OESOPHAGEAL DISORDER
     Route: 048
  5. CYCLOBENZAPR [Concomitant]
  6. NEXIUM [Suspect]
     Indication: HIATUS HERNIA
     Route: 048
  7. COUMADIN [Concomitant]
     Indication: CARDIAC DISORDER
  8. COUMADIN [Concomitant]
     Indication: THROMBOSIS
  9. HYDROCORTISONE [Concomitant]
     Indication: ADRENAL DISORDER
  10. SYNTHROID [Concomitant]
     Indication: THYROID DISORDER
  11. KLONOPIN [Concomitant]
     Indication: RESTLESS LEGS SYNDROME
  12. TRANSIDONE [Concomitant]
  13. SEROQUEL XR [Suspect]
     Indication: BIPOLAR DISORDER
     Route: 048
     Dates: start: 20100501, end: 20110901
  14. PAIN PILLS [Concomitant]
     Indication: PAIN
     Dosage: 5 MG EVERY 4-6 HOUR
     Route: 048
  15. DYE HDNA ZOPYRID [Concomitant]
  16. 2 MUSCLE RELAXANTS [Concomitant]
  17. TRAZODONE HCL [Concomitant]
  18. ZONEX [Concomitant]
  19. HYDROCODONE BITARTRATE [Concomitant]
     Indication: PAIN
     Dosage: 10/325 DAILY
  20. PHENAZOPYRIDINE HCL TAB [Concomitant]
     Indication: BLADDER DISORDER

REACTIONS (7)
  - PSYCHOTIC DISORDER [None]
  - LIGAMENT RUPTURE [None]
  - SELF INJURIOUS BEHAVIOUR [None]
  - DRUG DOSE OMISSION [None]
  - HALLUCINATION [None]
  - SCREAMING [None]
  - DISORIENTATION [None]
